FAERS Safety Report 16290910 (Version 14)
Quarter: 2020Q1

REPORT INFORMATION
  Report Type: Report from Study
  Country: CO (occurrence: CO)
  Receive Date: 20190509
  Receipt Date: 20200128
  Transmission Date: 20200409
  Serious: Yes (Other)
  Sender: FDA-Public Use
  Company Number: CO-ACTELION-A-CH2018-182276

PATIENT
  Age: 31 Year
  Sex: Female
  Weight: 47 kg

DRUGS (6)
  1. ZAVESCA [Suspect]
     Active Substance: MIGLUSTAT
     Dosage: 200 MG, TID
     Route: 048
     Dates: start: 20190625, end: 20190724
  2. ZAVESCA [Suspect]
     Active Substance: MIGLUSTAT
     Dosage: 200 MG, TID
     Route: 048
     Dates: start: 20191107
  3. ZAVESCA [Suspect]
     Active Substance: MIGLUSTAT
     Dosage: 200 MG, TID
     Route: 048
     Dates: start: 20180129, end: 20190204
  4. ZAVESCA [Suspect]
     Active Substance: MIGLUSTAT
     Dosage: 200 MG, TID
     Route: 048
     Dates: start: 20190802, end: 20190831
  5. ZAVESCA [Suspect]
     Active Substance: MIGLUSTAT
     Dosage: 200 MG, TID
     Route: 048
     Dates: start: 20191003, end: 20191018
  6. ZAVESCA [Suspect]
     Active Substance: MIGLUSTAT
     Indication: NIEMANN-PICK DISEASE
     Dosage: 200 MG, TID
     Route: 048
     Dates: start: 20190224, end: 20190623

REACTIONS (27)
  - Pain [Not Recovered/Not Resolved]
  - General physical health deterioration [Not Recovered/Not Resolved]
  - Insomnia [Unknown]
  - Dizziness [Not Recovered/Not Resolved]
  - Diarrhoea [Not Recovered/Not Resolved]
  - Weight increased [Unknown]
  - Asthenia [Not Recovered/Not Resolved]
  - Weight decreased [Not Recovered/Not Resolved]
  - Scratch [Not Recovered/Not Resolved]
  - Aggression [Not Recovered/Not Resolved]
  - Dysphemia [Unknown]
  - Vomiting [Not Recovered/Not Resolved]
  - Choking sensation [Not Recovered/Not Resolved]
  - Infrequent bowel movements [Not Recovered/Not Resolved]
  - Foreign body in ear [Not Recovered/Not Resolved]
  - Syncope [Not Recovered/Not Resolved]
  - Mucosal discolouration [Not Recovered/Not Resolved]
  - Pain in extremity [Not Recovered/Not Resolved]
  - Depression [Not Recovered/Not Resolved]
  - Malaise [Not Recovered/Not Resolved]
  - Alopecia [Not Recovered/Not Resolved]
  - Ear operation [Not Recovered/Not Resolved]
  - Fatigue [Not Recovered/Not Resolved]
  - Gait disturbance [Not Recovered/Not Resolved]
  - Pallor [Not Recovered/Not Resolved]
  - Contusion [Unknown]
  - Eye swelling [Recovered/Resolved]

NARRATIVE: CASE EVENT DATE: 2018
